FAERS Safety Report 6999572-2 (Version None)
Quarter: 2010Q3

REPORT INFORMATION
  Report Type: 
  Country: None (occurrence: None)
  Receive Date: 20100920
  Receipt Date: 20070924
  Transmission Date: 20110219
  Serious: Yes (Other)
  Sender: FDA-Public Use
  Company Number: US-ASTRAZENECA-2006UW21354

PATIENT
  Age: 51 Year
  Sex: Female
  Weight: 86.6 kg

DRUGS (13)
  1. SEROQUEL [Suspect]
     Indication: BIPOLAR DISORDER
     Route: 048
     Dates: start: 20040929
  2. SEROQUEL [Suspect]
     Indication: SCHIZOPHRENIA
     Route: 048
     Dates: start: 20040929
  3. SEROQUEL [Suspect]
     Route: 048
     Dates: start: 20060118
  4. SEROQUEL [Suspect]
     Route: 048
     Dates: start: 20060118
  5. CLOZARIL [Concomitant]
  6. RISPERDAL [Concomitant]
  7. SOLIAN [Concomitant]
  8. TEMAZEPAN [Concomitant]
     Dates: start: 20010620
  9. TEMAZEPAN [Concomitant]
     Dosage: 30 MG, 2 MG
  10. BENZTROPIN [Concomitant]
     Dosage: 30 MG, 2 MG
  11. DEPAKOTE [Concomitant]
     Dosage: 250 MG BID, 500 MG QPM
     Route: 048
     Dates: start: 19931015
  12. CLONIDINE [Concomitant]
     Route: 048
     Dates: start: 20051130
  13. TRAZODONE HCL [Concomitant]
     Route: 048
     Dates: start: 19931014

REACTIONS (3)
  - DIABETES MELLITUS [None]
  - DIABETIC COMA [None]
  - TYPE 2 DIABETES MELLITUS [None]
